FAERS Safety Report 4370941-2 (Version None)
Quarter: 2004Q2

REPORT INFORMATION
  Report Type: 
  Country: None (occurrence: None)
  Receive Date: 20040601
  Receipt Date: 20040519
  Transmission Date: 20050107
  Serious: Yes (Hospitalization)
  Sender: FDA-Public Use
  Company Number: PERI00204001459

PATIENT
  Age: 79 Year
  Sex: Male

DRUGS (2)
  1. COVERSYL (PERINDOPRIL) [Suspect]
     Indication: ILL-DEFINED DISORDER
     Dosage: 2 MG QD PO
     Route: 048
  2. LASIX [Suspect]
     Indication: ILL-DEFINED DISORDER
     Dosage: 40 MG QD PO
     Route: 048

REACTIONS (8)
  - CARDIAC MURMUR [None]
  - CONDITION AGGRAVATED [None]
  - DEHYDRATION [None]
  - HYPERKALAEMIA [None]
  - MUSCLE CRAMP [None]
  - PAIN IN EXTREMITY [None]
  - RENAL FAILURE [None]
  - WEIGHT DECREASED [None]
